FAERS Safety Report 19088211 (Version 1)
Quarter: 2021Q2

REPORT INFORMATION
  Report Type: Spontaneous
  Country: CN (occurrence: CN)
  Receive Date: 20210402
  Receipt Date: 20210402
  Transmission Date: 20210717
  Serious: Yes (Hospitalization)
  Sender: FDA-Public Use
  Company Number: CN-PFIZER INC-2021355385

PATIENT
  Age: 47 Year
  Sex: Male
  Weight: 64 kg

DRUGS (7)
  1. SODIUM CHLORIDE. [Concomitant]
     Active Substance: SODIUM CHLORIDE
     Indication: VEHICLE SOLUTION USE
     Dosage: 250 ML, 1X/DAY
     Route: 041
     Dates: start: 20210311, end: 20210317
  2. GLUCOSE [Concomitant]
     Active Substance: DEXTROSE
     Indication: VEHICLE SOLUTION USE
     Dosage: 500 ML, 1X/DAY
     Route: 041
     Dates: start: 20210311, end: 20210314
  3. CYTOSAR [Suspect]
     Active Substance: CYTARABINE
     Dosage: 100 MG, 1X/DAY
     Route: 058
     Dates: start: 20210311, end: 20210317
  4. SODIUM CHLORIDE. [Concomitant]
     Active Substance: SODIUM CHLORIDE
     Indication: VEHICLE SOLUTION USE
     Dosage: 1 ML, 1X/DAY
     Route: 058
     Dates: start: 20210311, end: 20210317
  5. AI NUO NING [Suspect]
     Active Substance: IDARUBICIN HYDROCHLORIDE
     Indication: CHEMOTHERAPY
     Dosage: 10 MG, 1X/DAY
     Route: 041
     Dates: start: 20210311, end: 20210314
  6. CYTOSAR [Suspect]
     Active Substance: CYTARABINE
     Indication: CHEMOTHERAPY
     Dosage: 100 MG, 1X/DAY
     Route: 041
     Dates: start: 20210311, end: 20210317
  7. VENCLEXTA [Suspect]
     Active Substance: VENETOCLAX
     Indication: IMMUNISATION
     Dosage: 400 MG, 1X/DAY
     Route: 048
     Dates: start: 20210311, end: 20210319

REACTIONS (1)
  - Full blood count decreased [Recovering/Resolving]

NARRATIVE: CASE EVENT DATE: 20210315
